FAERS Safety Report 25415769 (Version 1)
Quarter: 2025Q2

REPORT INFORMATION
  Report Type: Spontaneous
  Country: US (occurrence: US)
  Receive Date: 20250610
  Receipt Date: 20250610
  Transmission Date: 20250716
  Serious: No
  Sender: ROCHE
  Company Number: US-ROCHE-10000302444

PATIENT

DRUGS (1)
  1. TOCILIZUMAB [Suspect]
     Active Substance: TOCILIZUMAB
     Indication: Transplant rejection
     Route: 042

REACTIONS (4)
  - Hepatic function abnormal [Recovered/Resolved]
  - Hypersensitivity [Unknown]
  - Infection [Unknown]
  - Off label use [Unknown]
